FAERS Safety Report 19905635 (Version 1)
Quarter: 2021Q3

REPORT INFORMATION
  Report Type: Spontaneous
  Country: US (occurrence: US)
  Receive Date: 20210930
  Receipt Date: 20210930
  Transmission Date: 20211014
  Serious: No
  Sender: FDA-Public Use
  Company Number: US-SUNOVION-2021SUN003694

PATIENT
  Sex: Male

DRUGS (5)
  1. NICODERM CQ [Suspect]
     Active Substance: NICOTINE
  2. LUNESTA [Suspect]
     Active Substance: ESZOPICLONE
     Indication: INSOMNIA
     Dosage: UNK
     Route: 048
  3. CRESTOR [Concomitant]
     Active Substance: ROSUVASTATIN CALCIUM
     Dosage: UNK
  4. XANAX [Concomitant]
     Active Substance: ALPRAZOLAM
     Indication: INSOMNIA
  5. CHANTIX [Suspect]
     Active Substance: VARENICLINE TARTRATE
     Indication: SMOKING CESSATION THERAPY

REACTIONS (7)
  - Abdominal discomfort [Unknown]
  - Abnormal dreams [Unknown]
  - Sleep disorder [Unknown]
  - Discomfort [Unknown]
  - Flushing [Unknown]
  - Stress [Unknown]
  - Feeling hot [Unknown]
